FAERS Safety Report 10039954 (Version 2)
Quarter: 2014Q1

REPORT INFORMATION
  Report Type: Report from Study
  Country: CA (occurrence: CA)
  Receive Date: 20140326
  Receipt Date: 20140326
  Transmission Date: 20141002
  Serious: Yes (Other)
  Sender: FDA-Public Use
  Company Number: CA-JNJFOC-20140208052

PATIENT
  Age: 52 Year
  Sex: Female
  Weight: 79 kg

DRUGS (2)
  1. REMICADE [Suspect]
     Indication: CROHN^S DISEASE
     Route: 042
     Dates: start: 20110921
  2. REMICADE [Suspect]
     Indication: CROHN^S DISEASE
     Dosage: 19-FEB-201
     Route: 042

REACTIONS (6)
  - Eye haemorrhage [Unknown]
  - Hypertension [Unknown]
  - Carpal tunnel syndrome [Unknown]
  - Headache [Unknown]
  - Rash [Unknown]
  - Abdominal pain [Unknown]
